FAERS Safety Report 8553403-8 (Version None)
Quarter: 2012Q2

REPORT INFORMATION
  Report Type: 
  Country: None (occurrence: None)
  Receive Date: 20120417
  Receipt Date: 20110531
  Transmission Date: 20120825
  Serious: Yes (Other)
  Sender: FDA-Public Use
  Company Number: 11-328

PATIENT
  Age: 59 Year
  Sex: Male
  Weight: 91 kg

DRUGS (6)
  1. NEXIUM [Concomitant]
  2. NEURONTIN [Concomitant]
  3. TOPROL-XL [Concomitant]
  4. ATACAND [Concomitant]
  5. CRESTOR [Concomitant]
  6. ALEVE [Suspect]
     Indication: PAIN MANAGEMENT
     Dosage: 1DF / ONCE / ORAL
     Route: 048
     Dates: start: 20110501

REACTIONS (6)
  - FEELING JITTERY [None]
  - PALATAL OEDEMA [None]
  - DYSPHAGIA [None]
  - POOR QUALITY SLEEP [None]
  - WHEEZING [None]
  - PHARYNGEAL OEDEMA [None]
